FAERS Safety Report 9228999 (Version 1)
Quarter: 2013Q2

REPORT INFORMATION
  Report Type: Spontaneous
  Country: BR (occurrence: BR)
  Receive Date: 20130412
  Receipt Date: 20130412
  Transmission Date: 20140414
  Serious: Yes (Other)
  Sender: FDA-Public Use
  Company Number: BR-ASTRAZENECA-2013SE21861

PATIENT
  Age: 28 Year
  Sex: Female
  Weight: 86 kg

DRUGS (2)
  1. SYMBICORT TURBUHALER [Suspect]
     Indication: BRONCHITIS
     Dosage: 320/9 MCG TWO INHALATION AS REQUIRED
     Route: 055
     Dates: start: 2009
  2. SYMBICORT TURBUHALER [Suspect]
     Indication: BRONCHITIS
     Dosage: 320/9 MCG ONE INHALATION DAILY
     Route: 055
     Dates: start: 2009

REACTIONS (3)
  - Bronchitis [Recovered/Resolved]
  - Fatigue [Recovered/Resolved]
  - Intentional drug misuse [Not Recovered/Not Resolved]
